FAERS Safety Report 6160722-1 (Version None)
Quarter: 2009Q2

REPORT INFORMATION
  Report Type: 
  Country: None (occurrence: None)
  Receive Date: 20090420
  Receipt Date: 20090408
  Transmission Date: 20091009
  Serious: Yes (Other)
  Sender: FDA-Public Use
  Company Number: CN-PFIZER INC-2009198124

PATIENT

DRUGS (1)
  1. VFEND [Suspect]
     Dates: start: 20090101

REACTIONS (1)
  - BREAST NEOPLASM [None]
